FAERS Safety Report 7350470-4 (Version None)
Quarter: 2011Q1

REPORT INFORMATION
  Report Type: 
  Country: None (occurrence: None)
  Receive Date: 20110314
  Receipt Date: 20091020
  Transmission Date: 20110831
  Serious: Yes (Disabling, Other)
  Sender: FDA-Public Use
  Company Number: PHHY2009DE67394

PATIENT

DRUGS (1)
  1. EXTAVIA [Suspect]
     Route: 058
     Dates: start: 20090720

REACTIONS (2)
  - JOINT SPRAIN [None]
  - INJECTION SITE ERYTHEMA [None]
